FAERS Safety Report 6828373-0 (Version None)
Quarter: 2010Q3

REPORT INFORMATION
  Report Type: 
  Country: None (occurrence: None)
  Receive Date: 20100709
  Receipt Date: 20070208
  Transmission Date: 20110219
  Serious: No
  Sender: FDA-Public Use
  Company Number: US-PFIZER INC-2007011123

PATIENT
  Sex: Female
  Weight: 67.13 kg

DRUGS (1)
  1. CHANTIX [Suspect]
     Indication: SMOKING CESSATION THERAPY
     Dates: start: 20070119

REACTIONS (6)
  - CONSTIPATION [None]
  - FATIGUE [None]
  - FLUSHING [None]
  - HYPERCHLORHYDRIA [None]
  - INSOMNIA [None]
  - MOOD SWINGS [None]
